FAERS Safety Report 5489030-9 (Version None)
Quarter: 2007Q4

REPORT INFORMATION
  Report Type: 
  Country: None (occurrence: None)
  Receive Date: 20071017
  Receipt Date: 20071008
  Transmission Date: 20080405
  Serious: Yes (Other)
  Sender: FDA-Public Use
  Company Number: GB-ABBOTT-07P-167-0356520-00

PATIENT
  Sex: Female
  Weight: 100.8 kg

DRUGS (1)
  1. REDUCTIL 10MG [Suspect]
     Indication: OBESITY
     Route: 048
     Dates: start: 20060927, end: 20070110

REACTIONS (1)
  - CHOLESTASIS OF PREGNANCY [None]
